FAERS Safety Report 18366974 (Version 1)
Quarter: 2020Q4

REPORT INFORMATION
  Report Type: Report from Study
  Country: GB (occurrence: GB)
  Receive Date: 20201009
  Receipt Date: 20201009
  Transmission Date: 20210114
  Serious: Yes (Other)
  Sender: FDA-Public Use
  Company Number: GB-SAMSUNG BIOEPIS-SB-2020-28789

PATIENT
  Sex: Female

DRUGS (1)
  1. IMRALDI [Suspect]
     Active Substance: ADALIMUMAB
     Indication: COLITIS ULCERATIVE
     Route: 058
     Dates: start: 20200814

REACTIONS (8)
  - Asthenia [Unknown]
  - Stress [Unknown]
  - Injection site pain [Unknown]
  - Colitis ulcerative [Unknown]
  - Body temperature [Unknown]
  - Wrong technique in product usage process [Unknown]
  - Suspected COVID-19 [Unknown]
  - Oropharyngeal pain [Unknown]
